FAERS Safety Report 18548022 (Version 1)
Quarter: 2020Q4

REPORT INFORMATION
  Report Type: Spontaneous
  Country: BR (occurrence: BR)
  Receive Date: 20201125
  Receipt Date: 20201125
  Transmission Date: 20210114
  Serious: Yes (Hospitalization)
  Sender: FDA-Public Use
  Company Number: BR-NOVOPROD-768596

PATIENT
  Age: 63 Year
  Sex: Female

DRUGS (1)
  1. VICTOZA [Suspect]
     Active Substance: LIRAGLUTIDE
     Indication: TYPE 2 DIABETES MELLITUS
     Dosage: 1.8 MG, FREQUENCY NOT REPORTED
     Route: 065
     Dates: start: 202008, end: 202011

REACTIONS (3)
  - Hepatitis [Unknown]
  - Nausea [Unknown]
  - Vomiting [Unknown]
